FAERS Safety Report 7775067-3 (Version None)
Quarter: 2011Q3

REPORT INFORMATION
  Report Type: 
  Country: None (occurrence: None)
  Receive Date: 20110923
  Receipt Date: 20110912
  Transmission Date: 20111222
  Serious: Yes (Life-Threatening)
  Sender: FDA-Public Use
  Company Number: CZ-JNJFOC-20110905169

PATIENT
  Sex: Male
  Weight: 18 kg

DRUGS (5)
  1. PREDNISONE [Concomitant]
     Indication: COLITIS
  2. REMICADE [Suspect]
     Route: 042
     Dates: start: 20110715
  3. REMICADE [Suspect]
     Route: 042
     Dates: start: 20110601
  4. AZATHIOPRINE [Concomitant]
     Indication: COLITIS
     Dosage: DOSE TBL ORAL
     Route: 048
     Dates: start: 20110615, end: 20110725
  5. REMICADE [Suspect]
     Indication: COLITIS
     Route: 042

REACTIONS (2)
  - POSTERIOR REVERSIBLE ENCEPHALOPATHY SYNDROME [None]
  - DRUG EFFECT DECREASED [None]
